FAERS Safety Report 5965772-3 (Version None)
Quarter: 2008Q4

REPORT INFORMATION
  Report Type: 
  Country: None (occurrence: None)
  Receive Date: 20081121
  Receipt Date: 20081121
  Transmission Date: 20090506
  Serious: Yes (Life-Threatening, Hospitalization)
  Sender: FDA-Public Use
  Company Number: None

PATIENT
  Age: 66 Year
  Sex: Female
  Weight: 70.3075 kg

DRUGS (1)
  1. MORPHINE SULFATE [Suspect]
     Indication: JOINT INJURY
     Dosage: 1 PILL 4-6 HOURS PO
     Route: 048
     Dates: start: 20080617, end: 20080618

REACTIONS (3)
  - HYPERSENSITIVITY [None]
  - LOSS OF CONSCIOUSNESS [None]
  - PRODUCT QUALITY ISSUE [None]
